FAERS Safety Report 20108941 (Version 1)
Quarter: 2021Q4

REPORT INFORMATION
  Report Type: Spontaneous
  Country: BE (occurrence: BE)
  Receive Date: 20211124
  Receipt Date: 20211124
  Transmission Date: 20220303
  Serious: Yes (Other)
  Sender: FDA-Public Use
  Company Number: BE-PFIZER INC-2021870787

PATIENT
  Age: 59 Year
  Sex: Male

DRUGS (11)
  1. ETOPOSIDE [Suspect]
     Active Substance: ETOPOSIDE
     Indication: Small cell lung cancer
     Dosage: 80 MG/M2, D 1, 2, 3
  2. ETOPOSIDE [Suspect]
     Active Substance: ETOPOSIDE
     Dosage: 1.5 G MG/M2, 25 % OF THE TOTAL DOSE DISSOLVED IN SALINE AND GIVEN IN 2 HR AT 12 HR INTERVAL
  3. CYCLOPHOSPHAMIDE [Suspect]
     Active Substance: CYCLOPHOSPHAMIDE
     Indication: Small cell lung cancer
     Dosage: 1000 MG/M2, D1, (1 G/M^2 D 1)
  4. CYCLOPHOSPHAMIDE [Suspect]
     Active Substance: CYCLOPHOSPHAMIDE
     Dosage: 200 MG/KG, 25 % OF THE TOTAL DOSE DISSOLVED IN SALINE AND INFUSED IN 1 HR
  5. ADRIAMYCIN [Suspect]
     Active Substance: DOXORUBICIN HYDROCHLORIDE
     Indication: Small cell lung cancer
     Dosage: 45 MG/M2, D1
  6. METOCLOPRAMIDE [Concomitant]
     Active Substance: METOCLOPRAMIDE
     Indication: Bladder irritation
     Dosage: 2 MG/KG, 5 TIMES A DAY, HIGH DOSES
  7. METOCLOPRAMIDE [Concomitant]
     Active Substance: METOCLOPRAMIDE
     Indication: Prophylaxis of nausea and vomiting
  8. SALINE                             /00075401/ [Concomitant]
     Dosage: UNK, THE DRUGS (25 % OF THE TOTAL DOSE) WERE DISSOLVED IN SALINE
  9. CISPLATIN [Concomitant]
     Active Substance: CISPLATIN
     Indication: Small cell lung cancer
     Dosage: 60 MG/M2, 1 COURSE
  10. MESNA [Concomitant]
     Active Substance: MESNA
     Indication: Bladder irritation
     Dosage: 10 MG/KG, Q 4 HOURS
  11. MESNA [Concomitant]
     Active Substance: MESNA
     Indication: Prophylaxis of nausea and vomiting

REACTIONS (1)
  - Atrioventricular block second degree [Recovered/Resolved]
